FAERS Safety Report 12080211 (Version 1)
Quarter: 2016Q1

REPORT INFORMATION
  Report Type: Report from Study
  Country: BR (occurrence: BR)
  Receive Date: 20160216
  Receipt Date: 20160216
  Transmission Date: 20160526
  Serious: Yes (Other)
  Sender: FDA-Public Use
  Company Number: BR-ABBVIE-16K-020-1556634-00

PATIENT
  Sex: Female
  Weight: 82 kg

DRUGS (5)
  1. SYNTHROID [Concomitant]
     Active Substance: LEVOTHYROXINE SODIUM
     Indication: THYROID DISORDER
     Route: 048
  2. HUMIRA [Suspect]
     Active Substance: ADALIMUMAB
     Indication: RHEUMATOID ARTHRITIS
     Route: 058
     Dates: start: 20130322
  3. SYNTHROID [Concomitant]
     Active Substance: LEVOTHYROXINE SODIUM
     Indication: THYROID DISORDER
     Route: 048
  4. HUMIRA [Suspect]
     Active Substance: ADALIMUMAB
     Route: 058
  5. FOLIC ACID. [Concomitant]
     Active Substance: FOLIC ACID
     Indication: PRODUCT USED FOR UNKNOWN INDICATION
     Route: 048
     Dates: start: 2013

REACTIONS (17)
  - Malaise [Unknown]
  - Feeling abnormal [Unknown]
  - Malaise [Unknown]
  - Fall [Unknown]
  - Insomnia [Unknown]
  - Feeling abnormal [Unknown]
  - Syncope [Recovered/Resolved]
  - Fall [Unknown]
  - Rheumatoid arthritis [Recovered/Resolved]
  - Crying [Recovering/Resolving]
  - Pain [Unknown]
  - Activities of daily living impaired [Unknown]
  - Cerebral disorder [Recovering/Resolving]
  - Activities of daily living impaired [Recovered/Resolved]
  - Syncope [Recovered/Resolved]
  - Memory impairment [Recovering/Resolving]
  - Throat tightness [Recovering/Resolving]

NARRATIVE: CASE EVENT DATE: 2013
